FAERS Safety Report 9242596 (Version 2)
Quarter: 2013Q2

REPORT INFORMATION
  Report Type: Spontaneous
  Country: US (occurrence: US)
  Receive Date: 20130419
  Receipt Date: 20130425
  Transmission Date: 20140414
  Serious: Yes (Hospitalization)
  Sender: FDA-Public Use
  Company Number: US-GLAXOSMITHKLINE-A0983455A

PATIENT
  Age: 41 Year
  Sex: Female

DRUGS (4)
  1. FLOLAN [Suspect]
     Indication: COR PULMONALE CHRONIC
     Dosage: 60NGKM CONTINUOUS
     Route: 042
     Dates: start: 20110119
  2. TRACLEER [Concomitant]
  3. LASIX [Concomitant]
  4. COUMADIN [Concomitant]

REACTIONS (4)
  - Central venous catheterisation [Unknown]
  - Pyrexia [Unknown]
  - Cough [Unknown]
  - Chills [Unknown]
